FAERS Safety Report 17637499 (Version 4)
Quarter: 2020Q3

REPORT INFORMATION
  Report Type: Spontaneous
  Country: US (occurrence: US)
  Receive Date: 20200407
  Receipt Date: 20200918
  Transmission Date: 20201102
  Serious: Yes (Other)
  Sender: FDA-Public Use
  Company Number: US-PFIZER INC-2020141026

PATIENT
  Age: 76 Year
  Sex: Female

DRUGS (1)
  1. CELEBREX [Suspect]
     Active Substance: CELECOXIB
     Dosage: UNK
     Route: 048

REACTIONS (5)
  - Diabetes mellitus [Unknown]
  - Hypersensitivity [Unknown]
  - Cough [Unknown]
  - Illness [Unknown]
  - Asthma [Unknown]
